FAERS Safety Report 8199055 (Version 3)
Quarter: 2013Q1

REPORT INFORMATION
  Report Type: Spontaneous
  Country: US (occurrence: None)
  Receive Date: 20111014
  Receipt Date: 20121106
  Transmission Date: 20140127
  Serious: Yes (Other)
  Sender: FDA-Public Use
  Company Number: 2011-3682

PATIENT
  Age: 10 Year
  Sex: Male

DRUGS (5)
  1. INCRELEX [Suspect]
     Indication: FAILURE TO THRIVE
     Dosage: 46 UNITS (23 UNITS,2 IN 1 D),SUBCUTANEOUS
     Route: 058
     Dates: start: 20110429
  2. KEPRA(LEVETIRACETAM) [Concomitant]
  3. TOPAMAX [Concomitant]
  4. MIRALAX [Concomitant]
  5. DIASTAT [Concomitant]

REACTIONS (5)
  - Nausea [None]
  - Vomiting [None]
  - Off label use [None]
  - Condition aggravated [None]
  - Convulsion [None]
